FAERS Safety Report 22007872 (Version 1)
Quarter: 2023Q1

REPORT INFORMATION
  Report Type: Spontaneous
  Country: IE (occurrence: None)
  Receive Date: 20230218
  Receipt Date: 20230218
  Transmission Date: 20230418
  Serious: Yes (Hospitalization, Other)
  Sender: FDA-Public Use
  Company Number: IE-MICRO LABS LIMITED-ML2023-00826

PATIENT
  Sex: Female

DRUGS (6)
  1. LEVETIRACETAM [Suspect]
     Active Substance: LEVETIRACETAM
     Indication: Dyskinesia
  2. LORAZEPAM [Suspect]
     Active Substance: LORAZEPAM
     Indication: Dyskinesia
  3. PHENOBARBITAL [Suspect]
     Active Substance: PHENOBARBITAL
     Indication: Dyskinesia
  4. SUXAMETHONIUM CHLORIDE. [Concomitant]
     Indication: Dyskinesia
  5. FENTANYL [Concomitant]
     Active Substance: FENTANYL
     Indication: Dyskinesia
     Dosage: 2 MCG/KG
  6. ATROPINE [Concomitant]
     Active Substance: ATROPINE
     Indication: Dyskinesia

REACTIONS (2)
  - Apnoea [Unknown]
  - Respiratory failure [Unknown]
